FAERS Safety Report 9121896 (Version 1)
Quarter: 2013Q1

REPORT INFORMATION
  Report Type: Spontaneous
  Country: US (occurrence: US)
  Receive Date: 20130114
  Receipt Date: 20130114
  Transmission Date: 20140127
  Serious: No
  Sender: FDA-Public Use
  Company Number: US-009507513-1301USA001843

PATIENT
  Age: 68 None
  Sex: Male

DRUGS (2)
  1. DULERA [Suspect]
     Indication: ASTHMA
     Dosage: 2 DF, BID
     Route: 055
     Dates: start: 201201
  2. ALBUTEROL [Concomitant]

REACTIONS (3)
  - Anxiety [Recovered/Resolved]
  - Product quality issue [Unknown]
  - Drug dose omission [Unknown]
